FAERS Safety Report 9179210 (Version 1)
Quarter: 2013Q1

REPORT INFORMATION
  Report Type: Other
  Country: ES (occurrence: ES)
  Receive Date: 20130321
  Receipt Date: 20130321
  Transmission Date: 20140127
  Serious: Yes (Other)
  Sender: FDA-Public Use
  Company Number: ES-WATSON-2013-04233

PATIENT
  Age: 72 Year
  Sex: Male

DRUGS (1)
  1. RAPAFLO (WATSON LABORATORIES) [Suspect]
     Indication: PRODUCT USED FOR UNKNOWN INDICATION
     Dosage: UNK
     Route: 048
     Dates: start: 20130116, end: 20130205

REACTIONS (1)
  - Ejaculation disorder [Unknown]
